FAERS Safety Report 14734502 (Version 2)
Quarter: 2018Q2

REPORT INFORMATION
  Report Type: Report from Study
  Country: JP (occurrence: JP)
  Receive Date: 20180409
  Receipt Date: 20180516
  Transmission Date: 20180711
  Serious: Yes (Death)
  Sender: FDA-Public Use
  Company Number: JP-ACTELION-A-CH2018-170204

PATIENT
  Age: 61 Year
  Sex: Female

DRUGS (15)
  1. PREDNISOLONE. [Concomitant]
     Active Substance: PREDNISOLONE
  2. BAKTAR [Concomitant]
     Active Substance: SULFAMETHOXAZOLE\TRIMETHOPRIM
  3. NITRIC OXIDE. [Concomitant]
     Active Substance: NITRIC OXIDE
  4. EPOPROSTENOL ACT [Suspect]
     Active Substance: EPOPROSTENOL
     Indication: PULMONARY ARTERIAL HYPERTENSION
     Dosage: 13 NG/KG, PER MIN
     Route: 042
     Dates: start: 201509, end: 20150919
  5. CRESTOR [Concomitant]
     Active Substance: ROSUVASTATIN CALCIUM
  6. PREDONINE [Concomitant]
     Active Substance: PREDNISOLONE
  7. EDIROL [Concomitant]
     Active Substance: ELDECALCITOL
  8. EPOPROSTENOL ACT [Suspect]
     Active Substance: EPOPROSTENOL
     Dosage: 5 NG/KG, PER MIN
     Route: 042
     Dates: start: 201509
  9. TRACLEER [Suspect]
     Active Substance: BOSENTAN
     Indication: PULMONARY ARTERIAL HYPERTENSION
     Dosage: 125 MG, QD
     Route: 048
     Dates: start: 20150909, end: 20150910
  10. EPOPROSTENOL ACT [Suspect]
     Active Substance: EPOPROSTENOL
     Dosage: 1 NG/KG, PER MIN
     Route: 042
     Dates: start: 20150908
  11. LANSOPRAZOLE. [Concomitant]
     Active Substance: LANSOPRAZOLE
  12. FEBURIC [Concomitant]
     Active Substance: FEBUXOSTAT
  13. FUROSEMIDE. [Concomitant]
     Active Substance: FUROSEMIDE
  14. REVATIO [Concomitant]
     Active Substance: SILDENAFIL CITRATE
  15. WARFARIN [Concomitant]
     Active Substance: WARFARIN

REACTIONS (3)
  - Pulmonary hypertension [Fatal]
  - Pulmonary oedema [Fatal]
  - Right ventricular failure [Fatal]

NARRATIVE: CASE EVENT DATE: 20150910
